FAERS Safety Report 7942218-7 (Version None)
Quarter: 2011Q4

REPORT INFORMATION
  Report Type: 
  Country: None (occurrence: None)
  Receive Date: 20111128
  Receipt Date: 20111115
  Transmission Date: 20120403
  Serious: Yes (Other)
  Sender: FDA-Public Use
  Company Number: CA-ELI_LILLY_AND_COMPANY-CA201111004531

PATIENT
  Sex: Male

DRUGS (13)
  1. RISPERIDONE [Concomitant]
  2. ZYPREXA [Suspect]
     Dosage: 7.5 MG, EACH EVENING
     Route: 048
  3. LORAZEPAM [Concomitant]
  4. TRAZODONE HCL [Concomitant]
  5. DIVALPROEX SODIUM [Concomitant]
  6. FLUPHENAZINE [Concomitant]
  7. LOXAPINE [Concomitant]
  8. ZYPREXA [Suspect]
     Dosage: 15 MG, EACH EVENING
     Route: 048
  9. ZYPREXA [Suspect]
     Dosage: 1 DF, UNK
     Route: 030
  10. ZYPREXA [Suspect]
     Dosage: 10 MG, EACH EVENING
     Route: 048
  11. ISONIAZID [Concomitant]
  12. ZYPREXA [Suspect]
     Indication: SCHIZOAFFECTIVE DISORDER
     Dosage: 5 MG, EACH EVENING
     Route: 048
  13. ZYPREXA [Suspect]
     Dosage: 12.5 MG, EACH EVENING
     Route: 048

REACTIONS (15)
  - TACHYCARDIA [None]
  - HYPERGLYCAEMIA [None]
  - CELLULITIS [None]
  - WEIGHT INCREASED [None]
  - DIABETES MELLITUS [None]
  - RASH ERYTHEMATOUS [None]
  - BLOOD CHOLESTEROL INCREASED [None]
  - OVERDOSE [None]
  - LOCALISED INFECTION [None]
  - PARONYCHIA [None]
  - HYPERTENSION [None]
  - HYPOGLYCAEMIC COMA [None]
  - INGROWING NAIL [None]
  - DIABETIC RETINOPATHY [None]
  - TINEA PEDIS [None]
